FAERS Safety Report 19843868 (Version 3)
Quarter: 2022Q1

REPORT INFORMATION
  Report Type: Report from Study
  Country: US (occurrence: US)
  Receive Date: 20210917
  Receipt Date: 20220122
  Transmission Date: 20220424
  Serious: Yes (Other)
  Sender: FDA-Public Use
  Company Number: US-NOVARTISTESTPH-NVSC2021US210294

PATIENT
  Sex: Male

DRUGS (1)
  1. ENTRESTO [Suspect]
     Active Substance: SACUBITRIL\VALSARTAN
     Indication: Product used for unknown indication
     Dosage: 24 MG, BID 24/26 MG (SACUBITRIL 24.3MG, VALSARTAN 25.7MG)
     Route: 048

REACTIONS (3)
  - Blindness [Unknown]
  - Myocardial infarction [Unknown]
  - Dizziness [Unknown]
